FAERS Safety Report 6469273-8 (Version None)
Quarter: 2009Q4

REPORT INFORMATION
  Report Type: 
  Country: None (occurrence: None)
  Receive Date: 20091203
  Receipt Date: 20071008
  Transmission Date: 20100525
  Serious: Yes (Hospitalization)
  Sender: FDA-Public Use
  Company Number: US-ELI_LILLY_AND_COMPANY-US200707005206

PATIENT
  Sex: Female
  Weight: 117.91 kg

DRUGS (8)
  1. OLANZAPINE [Suspect]
     Indication: BIPOLAR DISORDER
     Dosage: 2.5 MG, UNK
     Dates: start: 20010420, end: 20041228
  2. OLANZAPINE [Suspect]
     Dosage: 5 MG, UNK
  3. ABILIFY [Concomitant]
     Dates: start: 20070501
  4. SEROQUEL [Concomitant]
     Dates: start: 20060101
  5. GEODON [Concomitant]
     Dates: start: 20050101, end: 20060101
  6. RISPERDAL [Concomitant]
     Dates: start: 20020101, end: 20040726
  7. LITHIUM [Concomitant]
     Dosage: UNK, UNK
     Dates: start: 20010101
  8. EFFEXOR [Concomitant]
     Dates: start: 20000101, end: 20020101

REACTIONS (7)
  - BLOOD CHOLESTEROL INCREASED [None]
  - BLOOD TRIGLYCERIDES INCREASED [None]
  - CHOLECYSTECTOMY [None]
  - CHOLELITHIASIS [None]
  - DIABETES MELLITUS [None]
  - METABOLIC DISORDER [None]
  - WEIGHT INCREASED [None]
